FAERS Safety Report 7901292-4 (Version None)
Quarter: 2011Q4

REPORT INFORMATION
  Report Type: 
  Country: None (occurrence: None)
  Receive Date: 20111108
  Receipt Date: 20111101
  Transmission Date: 20120403
  Serious: Yes (Hospitalization)
  Sender: FDA-Public Use
  Company Number: PHHY2011NL96514

PATIENT
  Sex: Male

DRUGS (6)
  1. ZOMETA [Suspect]
     Indication: PROSTATE CANCER METASTATIC
     Dosage: 4 MG,/ 5ML ONCE EVERY 28 DAYS
     Route: 042
     Dates: start: 20100119
  2. PREDNISONE [Concomitant]
  3. ZOMETA [Suspect]
     Dosage: 4 MG,/ 5ML ONCE EVERY 28 DAYS
     Route: 042
     Dates: start: 20111101
  4. ZOLADEX [Concomitant]
  5. ACETAMINOPHEN [Concomitant]
     Dosage: 500 MG, UNK
  6. ZOMETA [Suspect]
     Dosage: 4 MG,/ 5ML ONCE EVERY 28 DAYS
     Route: 042
     Dates: start: 20110929

REACTIONS (2)
  - BLOOD URINE PRESENT [None]
  - BACK PAIN [None]
